FAERS Safety Report 8034204-6 (Version None)
Quarter: 2012Q1

REPORT INFORMATION
  Report Type: 
  Country: None (occurrence: None)
  Receive Date: 20120110
  Receipt Date: 20120105
  Transmission Date: 20120608
  Serious: Yes (Death)
  Sender: FDA-Public Use
  Company Number: FR-ROCHE-1028085

PATIENT
  Sex: Female

DRUGS (6)
  1. VINCRISTINE [Suspect]
     Indication: B-CELL LYMPHOMA
     Route: 042
     Dates: start: 20111018, end: 20111018
  2. POLARAMINE [Suspect]
     Indication: PREMEDICATION
     Route: 042
     Dates: start: 20111017, end: 20111017
  3. MOTILIUM (FRANCE) [Suspect]
     Indication: VOMITING
     Route: 048
     Dates: start: 20111017, end: 20111018
  4. MABTHERA [Suspect]
     Indication: B-CELL LYMPHOMA
     Route: 042
     Dates: start: 20111017, end: 20111017
  5. ACETAMINOPHEN [Suspect]
     Indication: PRODUCT USED FOR UNKNOWN INDICATION
     Route: 048
     Dates: start: 20111017, end: 20111017
  6. LOPRESSOR [Suspect]
     Indication: HYPERTENSION
     Route: 048
     Dates: start: 19810101

REACTIONS (2)
  - SHOCK [None]
  - CARDIAC ARREST [None]
